FAERS Safety Report 9448486 (Version 1)
Quarter: 2013Q3

REPORT INFORMATION
  Report Type: Spontaneous
  Country: US (occurrence: US)
  Receive Date: 20130808
  Receipt Date: 20130808
  Transmission Date: 20140515
  Serious: Yes (Other)
  Sender: FDA-Public Use
  Company Number: US-BANPHARM-20131539

PATIENT
  Age: 78 Year
  Sex: Female
  Weight: 99.79 kg

DRUGS (7)
  1. ALEVE LIQUID GELS 220 MG [Suspect]
     Indication: ARTHRITIS
     Dosage: 6 DF IN 24 HOURS
     Route: 048
     Dates: end: 20130723
  2. METFORMIN [Concomitant]
  3. PRILOSEC [Concomitant]
  4. SYNTHROID [Concomitant]
  5. BAYER ASPIRIN [Concomitant]
  6. VITAMIN D [Concomitant]
  7. LIPITOR [Concomitant]

REACTIONS (3)
  - Urinary tract infection [Unknown]
  - Chromaturia [Not Recovered/Not Resolved]
  - Incorrect dose administered [Unknown]
